FAERS Safety Report 13887529 (Version 1)
Quarter: 2017Q3

REPORT INFORMATION
  Report Type: Spontaneous
  Country: US (occurrence: US)
  Receive Date: 20170821
  Receipt Date: 20170821
  Transmission Date: 20171127
  Serious: No
  Sender: FDA-Public Use
  Company Number: US-ROCHE-1118715

PATIENT

DRUGS (1)
  1. ACTEMRA [Suspect]
     Active Substance: TOCILIZUMAB
     Indication: RHEUMATOID ARTHRITIS
     Dosage: 8 DOSES, 4 OF 4MG/KG AND 2 OF 8MG/KG AND LAST DOSE ON 15 AUGEST
     Route: 042

REACTIONS (2)
  - Stomatitis [Unknown]
  - Rash [Unknown]
